FAERS Safety Report 7094062-3 (Version None)
Quarter: 2010Q4

REPORT INFORMATION
  Report Type: 
  Country: None (occurrence: None)
  Receive Date: 20101110
  Receipt Date: 20101026
  Transmission Date: 20110411
  Serious: Yes (Hospitalization, Other)
  Sender: FDA-Public Use
  Company Number: US-AMGEN INC.-QUU444604

PATIENT

DRUGS (7)
  1. EPOGEN [Suspect]
     Indication: RENAL FAILURE CHRONIC
     Dosage: UNK UNK, QWK
     Route: 058
     Dates: start: 20081216, end: 20100908
  2. AMLODIPINE [Concomitant]
     Dosage: UNK
     Dates: start: 20100319
  3. CALCIUM ACETATE [Concomitant]
     Dosage: UNK
     Dates: start: 20091102
  4. CALCIUM CARBONATE [Concomitant]
     Dosage: UNK
     Dates: start: 20081203
  5. DIALYVITE 3000 [Concomitant]
     Dosage: UNK
     Dates: start: 20081117
  6. LISINOPRIL [Concomitant]
     Dosage: UNK
     Dates: start: 20091228
  7. OMEPRAZOLE [Concomitant]
     Dosage: UNK
     Dates: start: 20100719

REACTIONS (3)
  - ANAEMIA [None]
  - APLASIA PURE RED CELL [None]
  - THERAPEUTIC RESPONSE DECREASED [None]
